FAERS Safety Report 8773649 (Version 1)
Quarter: 2012Q4

REPORT INFORMATION
  Report Type: 
  Country: US (occurrence: US)
  Receive Date: 20120907
  Receipt Date: 20120907
  Transmission Date: 20130627
  Serious: Yes (Other)
  Sender: FDA-Public Use
  Company Number: US-ASTRAZENECA-2012SE65739

PATIENT
  Age: 75 Year
  Sex: Female

DRUGS (2)
  1. CRESTOR [Suspect]
     Route: 048
  2. UNSPECIFIED INGREDIENT [Suspect]
     Route: 065

REACTIONS (7)
  - Blindness unilateral [Unknown]
  - Macular degeneration [Unknown]
  - Glaucoma [Unknown]
  - Visual impairment [Unknown]
  - Nephrolithiasis [Unknown]
  - Pain [Unknown]
  - Muscle spasms [Unknown]
